FAERS Safety Report 6184606-8 (Version None)
Quarter: 2009Q2

REPORT INFORMATION
  Report Type: 
  Country: None (occurrence: None)
  Receive Date: 20090508
  Receipt Date: 20090429
  Transmission Date: 20091009
  Serious: Yes (Other)
  Sender: FDA-Public Use
  Company Number: PHEH2009US03924

PATIENT
  Sex: Female
  Weight: 73.923 kg

DRUGS (17)
  1. RECLAST [Suspect]
     Indication: OSTEOPOROSIS
     Dosage: UNK
     Dates: start: 20090403
  2. CALCIUM [Concomitant]
     Dosage: 1500 MG, QD
  3. VITAMIN D [Concomitant]
     Dosage: 1000 IU, QD
  4. NEXIUM [Concomitant]
     Dosage: 40 MG, BID
  5. VYTORIN [Concomitant]
     Dosage: 10/40 UNK, QD
  6. LEXAPRO [Concomitant]
     Dosage: 10 MG, TWO QD
  7. AVALIDE [Concomitant]
     Dosage: 300/25 MG, QD
  8. METOPROLOL [Concomitant]
  9. MELATONIN [Concomitant]
     Indication: SLEEP DISORDER
     Dosage: UNK
  10. SINGULAIR [Concomitant]
     Dosage: 10 MG, QD PRN
  11. IBUPROFEN [Concomitant]
     Indication: PAIN
     Dosage: UNK, PRN
  12. MILK OF MAGNESIA TAB [Concomitant]
     Indication: CONSTIPATION
     Dosage: 30 ML, BID PRN
  13. STOOL SOFTENER [Concomitant]
     Dosage: 2 UNK, 2-3 DAILY AS NEEDED
  14. NASONEX [Concomitant]
     Dosage: 1 PUFF EACH NOSTRIL, BID PRN
  15. TOPROL-XL [Concomitant]
     Dosage: 25 MG, BID
  16. POTASSIUM CHLORIDE [Concomitant]
     Dosage: 20 MEQ, QD
  17. ADVAIR DISKUS 100/50 [Concomitant]
     Dosage: 100/50, BID

REACTIONS (10)
  - BLOOD GLUCOSE INCREASED [None]
  - CARBON DIOXIDE INCREASED [None]
  - CELLULITIS [None]
  - ERYTHEMA [None]
  - HAEMATOCRIT DECREASED [None]
  - HAEMOGLOBIN DECREASED [None]
  - MEAN PLATELET VOLUME DECREASED [None]
  - OEDEMA PERIPHERAL [None]
  - PAIN IN EXTREMITY [None]
  - RED BLOOD CELL COUNT DECREASED [None]
